FAERS Safety Report 13185406 (Version 1)
Quarter: 2017Q1

REPORT INFORMATION
  Report Type: Report from Study
  Country: NL (occurrence: NL)
  Receive Date: 20170203
  Receipt Date: 20170203
  Transmission Date: 20170428
  Serious: Yes (Hospitalization)
  Sender: FDA-Public Use
  Company Number: NL-ROCHE-1889230

PATIENT
  Age: 38 Year
  Sex: Male

DRUGS (2)
  1. GANCICLOVIR. [Suspect]
     Active Substance: GANCICLOVIR
     Indication: ANAPLASTIC OLIGODENDROGLIOMA
     Route: 042
  2. IG.AD.MLPI.TK [Suspect]
     Active Substance: INVESTIGATIONAL PRODUCT
     Indication: ANAPLASTIC OLIGODENDROGLIOMA
     Dosage: 4.6X10E8
     Route: 036

REACTIONS (7)
  - Pyrexia [Unknown]
  - Pneumonia [Unknown]
  - Glioblastoma multiforme [None]
  - Hyponatraemia [None]
  - Malignant neoplasm progression [None]
  - Neurological decompensation [Unknown]
  - Vomiting [None]
